APPROVED DRUG PRODUCT: ESOMEPRAZOLE MAGNESIUM
Active Ingredient: ESOMEPRAZOLE MAGNESIUM
Strength: EQ 20MG BASE
Dosage Form/Route: CAPSULE, DELAYED REL PELLETS;ORAL
Application: A202784 | Product #001
Applicant: HETERO LABS LTD UNIT III
Approved: Sep 21, 2015 | RLD: No | RS: No | Type: DISCN